FAERS Safety Report 8001459-3 (Version None)
Quarter: 2011Q4

REPORT INFORMATION
  Report Type: 
  Country: None (occurrence: None)
  Receive Date: 20111222
  Receipt Date: 20111213
  Transmission Date: 20120403
  Serious: Yes (Other)
  Sender: FDA-Public Use
  Company Number: US-JNJFOC-20111011249

PATIENT
  Sex: Male
  Weight: 97.07 kg

DRUGS (6)
  1. REMICADE [Suspect]
     Indication: CROHN'S DISEASE
     Route: 042
     Dates: start: 20090501
  2. IMURAN [Concomitant]
     Route: 065
  3. WARFARIN SODIUM [Concomitant]
     Indication: DEEP VEIN THROMBOSIS
     Route: 065
  4. PENTASA [Concomitant]
     Indication: CROHN'S DISEASE
     Dosage: 2 PILLS
     Route: 065
  5. WARFARIN SODIUM [Concomitant]
     Indication: PULMONARY EMBOLISM
     Route: 065
  6. ALLOPURINOL [Concomitant]
     Route: 065

REACTIONS (1)
  - HERPES ZOSTER OPHTHALMIC [None]
